FAERS Safety Report 21795597 (Version 1)
Quarter: 2022Q4

REPORT INFORMATION
  Report Type: Spontaneous
  Country: US (occurrence: US)
  Receive Date: 20221229
  Receipt Date: 20221229
  Transmission Date: 20230113
  Serious: No
  Sender: FDA-Public Use
  Company Number: USA--2022-US-000856

PATIENT
  Age: 78 Year
  Sex: Female

DRUGS (3)
  1. OLOPATADINE HYDROCHLORIDE [Suspect]
     Active Substance: OLOPATADINE HYDROCHLORIDE
     Dosage: 1 GTT BOTH EYES QD, INCREASED TO 1 GTT OU BID
     Dates: start: 20221006
  2. NASONEX [Concomitant]
     Active Substance: MOMETASONE FUROATE
  3. Unspecified homeopathic remedy [Concomitant]

REACTIONS (3)
  - Ocular hyperaemia [Not Recovered/Not Resolved]
  - Eye pruritus [Not Recovered/Not Resolved]
  - Drug ineffective [Not Recovered/Not Resolved]

NARRATIVE: CASE EVENT DATE: 20221001
